FAERS Safety Report 5454737-6 (Version None)
Quarter: 2007Q3

REPORT INFORMATION
  Report Type: 
  Country: None (occurrence: None)
  Receive Date: 20070917
  Receipt Date: 20060824
  Transmission Date: 20080115
  Serious: Yes (Hospitalization)
  Sender: FDA-Public Use
  Company Number: US-ASTRAZENECA-2006UW14033

PATIENT
  Age: 4458 Day
  Sex: Female

DRUGS (5)
  1. SEROQUEL [Suspect]
     Indication: MOOD ALTERED
     Route: 048
     Dates: start: 20060620, end: 20060701
  2. ADDERALL 10 [Concomitant]
     Indication: ATTENTION DEFICIT/HYPERACTIVITY DISORDER
     Route: 048
     Dates: start: 20060411
  3. CLONIDINE [Concomitant]
  4. LEXAPRO [Concomitant]
     Indication: MOOD ALTERED
     Route: 048
     Dates: start: 20060411
  5. ABILIFY [Concomitant]
     Dosage: RECENTLY DISCONTINUED
     Route: 048

REACTIONS (1)
  - EXTRAPYRAMIDAL DISORDER [None]
